FAERS Safety Report 23648532 (Version 1)
Quarter: 2024Q1

REPORT INFORMATION
  Report Type: Spontaneous
  Country: ZW (occurrence: ZW)
  Receive Date: 20240319
  Receipt Date: 20240319
  Transmission Date: 20240410
  Serious: Yes (Death)
  Sender: FDA-Public Use
  Company Number: ZW-PFIZER INC-PV202400037329

PATIENT
  Age: 61 Year
  Sex: Male

DRUGS (1)
  1. SUNITINIB MALATE [Suspect]
     Active Substance: SUNITINIB MALATE
     Dosage: 50 MG

REACTIONS (1)
  - Death [Fatal]
